FAERS Safety Report 10426273 (Version 1)
Quarter: 2014Q3

REPORT INFORMATION
  Report Type: Spontaneous
  Country: AU (occurrence: AU)
  Receive Date: 20140903
  Receipt Date: 20140903
  Transmission Date: 20150326
  Serious: Yes (Other)
  Sender: FDA-Public Use
  Company Number: PHHY2014AU110545

PATIENT
  Age: 22 Year
  Sex: Female

DRUGS (6)
  1. EXJADE [Suspect]
     Active Substance: DEFERASIROX
     Indication: THALASSAEMIA
     Dosage: UNK UKN, UNK
     Route: 048
  2. DESFERAL [Suspect]
     Active Substance: DEFEROXAMINE MESYLATE
     Indication: THALASSAEMIA
     Dosage: UNK UKN, UNK
     Route: 042
  3. EXJADE [Suspect]
     Active Substance: DEFERASIROX
     Indication: SICKLE CELL ANAEMIA
  4. DESFERAL [Suspect]
     Active Substance: DEFEROXAMINE MESYLATE
     Indication: SICKLE CELL ANAEMIA
  5. DEFERIPRONE [Suspect]
     Active Substance: DEFERIPRONE
     Indication: THALASSAEMIA
     Dosage: UNK UKN, UNK
  6. DEFERIPRONE [Suspect]
     Active Substance: DEFERIPRONE
     Indication: SICKLE CELL ANAEMIA

REACTIONS (10)
  - Swelling face [Unknown]
  - Depression [Unknown]
  - Pulmonary embolism [Unknown]
  - Laryngeal oedema [Unknown]
  - Serum ferritin increased [Unknown]
  - Blindness [Unknown]
  - Poor venous access [Unknown]
  - Aneurysm [Unknown]
  - Intestinal ischaemia [Unknown]
  - Pain [Unknown]
